FAERS Safety Report 9236182 (Version 1)
Quarter: 2013Q2

REPORT INFORMATION
  Report Type: Spontaneous
  Country: US (occurrence: US)
  Receive Date: 20130417
  Receipt Date: 20130417
  Transmission Date: 20140414
  Serious: Yes (Hospitalization)
  Sender: FDA-Public Use
  Company Number: US-PFIZER INC-2013117747

PATIENT
  Age: 65 Year
  Sex: Female
  Weight: 85.71 kg

DRUGS (3)
  1. CELEBREX [Suspect]
     Indication: ARTHRITIS
     Dosage: 200 MG, 2X/DAY
     Route: 048
  2. CELEBREX [Suspect]
     Indication: ARTHRALGIA
  3. PREMARIN [Suspect]
     Indication: POSTOPERATIVE CARE
     Dosage: 0.625 MG, 1X/DAY
     Route: 048

REACTIONS (3)
  - Nerve compression [Recovering/Resolving]
  - Sinusitis [Recovered/Resolved]
  - Memory impairment [Unknown]
